FAERS Safety Report 5491324-8 (Version None)
Quarter: 2007Q4

REPORT INFORMATION
  Report Type: 
  Country: None (occurrence: None)
  Receive Date: 20071019
  Receipt Date: 20071015
  Transmission Date: 20080405
  Serious: Yes (Hospitalization)
  Sender: FDA-Public Use
  Company Number: US-BOEHRINGER INGELHEIM PHARMACEUTICALS, INC.-2007-BP-22815BP

PATIENT
  Age: 93 Year
  Sex: Male

DRUGS (3)
  1. MIRAPEX [Suspect]
     Indication: RESTLESS LEGS SYNDROME
     Route: 048
     Dates: start: 20070904, end: 20071004
  2. CHOLESTEROL MEDICATION [Concomitant]
     Indication: BLOOD CHOLESTEROL INCREASED
  3. GLAUCOMA EYE DROPS [Concomitant]
     Indication: GLAUCOMA

REACTIONS (4)
  - AGITATION [None]
  - CONFUSIONAL STATE [None]
  - MOBILITY DECREASED [None]
  - PARANOIA [None]
